FAERS Safety Report 4269542-6 (Version None)
Quarter: 2004Q1

REPORT INFORMATION
  Report Type: 
  Country: None (occurrence: None)
  Receive Date: 20040109
  Receipt Date: 20040106
  Transmission Date: 20041129
  Serious: Yes (Hospitalization)
  Sender: FDA-Public Use
  Company Number: GB-JNJFOC-20040100636

PATIENT
  Age: 75 Year
  Sex: Male

DRUGS (12)
  1. REMICADE [Suspect]
     Indication: RHEUMATOID ARTHRITIS
     Dosage: 261 MG, INTRAVENOUS
     Route: 042
     Dates: start: 20030409
  2. METHOTREXATE [Concomitant]
  3. PREDNISOLONE [Concomitant]
  4. METFORMIN HCL [Concomitant]
  5. NOVONORM (REPAGLINIDE) [Concomitant]
  6. ATENOLOL [Concomitant]
  7. IRBESARTAN [Concomitant]
  8. BENDROFLUAZIDE (BENDROFLUMETHIAZIDE) [Concomitant]
  9. RANITIDINE [Concomitant]
  10. GLYBURIDE [Concomitant]
  11. SIMVASTATIN [Concomitant]
  12. ASPIRIN [Concomitant]

REACTIONS (3)
  - DYSPNOEA EXERTIONAL [None]
  - RESPIRATORY DISORDER [None]
  - SMOKER [None]
